FAERS Safety Report 4864973-5 (Version None)
Quarter: 2005Q4

REPORT INFORMATION
  Report Type: 
  Country: None (occurrence: None)
  Receive Date: 20051223
  Receipt Date: 20051215
  Transmission Date: 20060501
  Serious: Yes (Disabling, Other)
  Sender: FDA-Public Use
  Company Number: PHBS2005GL18717

PATIENT
  Age: 12 Year
  Sex: Male
  Weight: 49 kg

DRUGS (1)
  1. RITALIN [Suspect]
     Indication: ATTENTION DEFICIT/HYPERACTIVITY DISORDER
     Dosage: 15 MG, TID
     Route: 048
     Dates: start: 20010511

REACTIONS (2)
  - ANAEMIA [None]
  - GASTRIC ULCER [None]
